FAERS Safety Report 7022842-9 (Version None)
Quarter: 2010Q3

REPORT INFORMATION
  Report Type: 
  Country: None (occurrence: None)
  Receive Date: 20100930
  Receipt Date: 20100927
  Transmission Date: 20110219
  Serious: Yes (Other)
  Sender: FDA-Public Use
  Company Number: B0676417A

PATIENT
  Sex: Female

DRUGS (3)
  1. AUGMENTIN '125' [Suspect]
     Dosage: 2G PER DAY
     Route: 042
     Dates: start: 20100301, end: 20100301
  2. CYTOTEC [Suspect]
     Dosage: 200MCG FOUR TIMES PER DAY
     Route: 048
     Dates: start: 20100301, end: 20100301
  3. DOLIPRANE [Suspect]
     Indication: PRODUCT USED FOR UNKNOWN INDICATION
     Dosage: 1G SINGLE DOSE
     Route: 048
     Dates: start: 20100301, end: 20100301

REACTIONS (4)
  - ANAPHYLACTIC SHOCK [None]
  - GENERALISED ERYTHEMA [None]
  - PARAESTHESIA [None]
  - RESPIRATORY DISORDER [None]
